FAERS Safety Report 6208209-1 (Version None)
Quarter: 2009Q2

REPORT INFORMATION
  Report Type: 
  Country: None (occurrence: None)
  Receive Date: 20090529
  Receipt Date: 20090519
  Transmission Date: 20091009
  Serious: Yes (Hospitalization)
  Sender: FDA-Public Use
  Company Number: JP-BRISTOL-MYERS SQUIBB COMPANY-14608376

PATIENT
  Age: 52 Year
  Sex: Male

DRUGS (15)
  1. EFAVIRENZ CAPS [Suspect]
     Indication: HIV INFECTION
     Dosage: INTERRUPTED ON 16MAY2008. RESTARTED AT DOSE OF 600MG
     Route: 048
     Dates: start: 20080415
  2. EFAVIRENZ ORAL SOLN [Suspect]
     Indication: HIV INFECTION
     Route: 048
  3. BAKTAR [Suspect]
     Indication: ANTIFUNGAL PROPHYLAXIS
     Dosage: TAB
     Route: 048
     Dates: start: 20080220
  4. OMEPRAL [Suspect]
     Indication: PROPHYLAXIS AGAINST GASTROINTESTINAL ULCER
     Dosage: TAB ER OMEPRAZOLE
     Route: 048
     Dates: start: 20080220
  5. FLUCONAZOLE [Suspect]
     Indication: FUNGAL INFECTION
     Dosage: CAP FLUCONAZOLE
     Route: 048
     Dates: start: 20080220
  6. FLAGYL [Suspect]
     Indication: AMOEBIASIS
     Dosage: TAB FORM
     Route: 048
     Dates: start: 20080220
  7. RIMACTANE [Suspect]
     Indication: TUBERCULOSIS
     Dosage: CAP RIFAMPIN
     Route: 048
     Dates: start: 20080222
  8. ISCOTIN [Suspect]
     Indication: TUBERCULOSIS
     Dosage: TAB
     Route: 048
     Dates: start: 20080222
  9. EBUTOL [Suspect]
     Indication: TUBERCULOSIS
     Dosage: TAB
     Route: 048
     Dates: start: 20080222
  10. CRAVIT [Suspect]
     Indication: TUBERCULOSIS
     Dosage: TAB
     Route: 048
     Dates: start: 20080222
  11. PYDOXAL [Suspect]
     Indication: TUBERCULOSIS
     Dosage: TAB
     Route: 048
     Dates: start: 20080222
  12. RETROVIR [Suspect]
     Indication: HIV INFECTION
     Dosage: CAP
     Dates: start: 20080304, end: 20080415
  13. EPIVIR [Suspect]
     Indication: HIV INFECTION
     Dosage: TAB
     Route: 048
     Dates: start: 20080304
  14. ZIAGEN [Suspect]
     Indication: HIV INFECTION
     Dosage: TAB
     Route: 048
     Dates: start: 20080304
  15. PREDONINE [Suspect]
     Indication: IMMUNE RECONSTITUTION SYNDROME
     Route: 048
     Dates: start: 20080318

REACTIONS (1)
  - GLUCOSE TOLERANCE IMPAIRED [None]
